FAERS Safety Report 18542365 (Version 2)
Quarter: 2020Q4

REPORT INFORMATION
  Report Type: Report from Study
  Country: CA (occurrence: CA)
  Receive Date: 20201124
  Receipt Date: 20201215
  Transmission Date: 20210114
  Serious: Yes (Other)
  Sender: FDA-Public Use
  Company Number: CA-TAKEDA-2020TUS021015

PATIENT
  Age: 55 Year
  Sex: Female

DRUGS (4)
  1. VEDOLIZUMAB [Suspect]
     Active Substance: VEDOLIZUMAB
     Indication: COLITIS ULCERATIVE
     Dosage: 300 MILLIGRAM
     Route: 042
     Dates: start: 20190924
  2. VEDOLIZUMAB [Suspect]
     Active Substance: VEDOLIZUMAB
     Dosage: 300 MILLIGRAM, Q4WEEKS
     Route: 042
     Dates: start: 20200723
  3. VEDOLIZUMAB [Suspect]
     Active Substance: VEDOLIZUMAB
     Dosage: 300 MILLIGRAM, Q4WEEKS
     Route: 042
  4. VEDOLIZUMAB [Suspect]
     Active Substance: VEDOLIZUMAB
     Dosage: 300 MILLIGRAM, Q4WEEKS
     Route: 042

REACTIONS (16)
  - Abdominal mass [Unknown]
  - Insomnia [Unknown]
  - Abdominal distension [Unknown]
  - Fatigue [Unknown]
  - Gastrointestinal disorder [Recovered/Resolved]
  - Abdominal pain [Unknown]
  - Stress [Unknown]
  - Hypophagia [Unknown]
  - Constipation [Unknown]
  - Diabetes mellitus inadequate control [Unknown]
  - Frequent bowel movements [Recovered/Resolved]
  - Haemorrhoids [Unknown]
  - Haematochezia [Unknown]
  - Off label use [Unknown]
  - Hepatic cirrhosis [Unknown]
  - Diarrhoea [Unknown]

NARRATIVE: CASE EVENT DATE: 20200427
